FAERS Safety Report 21384338 (Version 1)
Quarter: 2022Q3

REPORT INFORMATION
  Report Type: Spontaneous
  Country: KR (occurrence: KR)
  Receive Date: 20220928
  Receipt Date: 20220928
  Transmission Date: 20221027
  Serious: Yes (Other)
  Sender: FDA-Public Use
  Company Number: KR-JNJFOC-A-CH2017-149394

PATIENT
  Age: 23 Year
  Sex: Female

DRUGS (4)
  1. BOSENTAN [Suspect]
     Active Substance: BOSENTAN
     Indication: Pulmonary arterial hypertension
     Dosage: UNK
     Route: 048
  2. FUROSEMIDE [Concomitant]
     Active Substance: FUROSEMIDE
  3. DIGOXIN [Concomitant]
     Active Substance: DIGOXIN
  4. OXYGEN [Concomitant]
     Active Substance: OXYGEN

REACTIONS (11)
  - Orthopnoea [Recovering/Resolving]
  - Dyspnoea [Recovering/Resolving]
  - Cardiac septal defect repair [Unknown]
  - Pulmonary artery banding [Unknown]
  - Post procedural haemorrhage [Unknown]
  - Acute kidney injury [Unknown]
  - Haemodialysis [Unknown]
  - Oxygen saturation abnormal [Recovering/Resolving]
  - Nephropathy toxic [Unknown]
  - Pulmonary artery dilatation [Unknown]
  - Haematoma evacuation [Unknown]
